FAERS Safety Report 5599440-7 (Version None)
Quarter: 2008Q1

REPORT INFORMATION
  Report Type: 
  Country: None (occurrence: None)
  Receive Date: 20080122
  Receipt Date: 20080110
  Transmission Date: 20080703
  Serious: Yes (Other)
  Sender: FDA-Public Use
  Company Number: US-PFIZER INC-2008005232

PATIENT
  Sex: Female
  Weight: 45.4 kg

DRUGS (4)
  1. CHANTIX [Suspect]
     Indication: SMOKING CESSATION THERAPY
     Dates: start: 20070601, end: 20071201
  2. FLEXERIL [Concomitant]
  3. ZANTAC [Concomitant]
  4. ALLERGY MEDICATION [Concomitant]

REACTIONS (2)
  - NERVOUSNESS [None]
  - SUICIDAL IDEATION [None]
